FAERS Safety Report 14060761 (Version 1)
Quarter: 2017Q4

REPORT INFORMATION
  Report Type: Report from Study
  Country: CA (occurrence: CA)
  Receive Date: 20171009
  Receipt Date: 20171009
  Transmission Date: 20180321
  Serious: Yes (Other)
  Sender: FDA-Public Use
  Company Number: PHHY2016CA088863

PATIENT
  Age: 49 Year
  Sex: Female

DRUGS (2)
  1. EXJADE [Suspect]
     Active Substance: DEFERASIROX
     Indication: THALASSAEMIA
     Dosage: UNK
     Route: 048
     Dates: start: 20120222, end: 20160615
  2. JADENU [Suspect]
     Active Substance: DEFERASIROX
     Indication: THALASSAEMIA
     Dosage: 1260 MG, QD
     Route: 048
     Dates: start: 20160616

REACTIONS (9)
  - Nasopharyngitis [Unknown]
  - Hypersensitivity [Unknown]
  - Nephrolithiasis [Unknown]
  - Pain [Unknown]
  - Wrong technique in product usage process [Unknown]
  - Bowel movement irregularity [Unknown]
  - Urine abnormality [Unknown]
  - Sinusitis [Unknown]
  - Serum ferritin abnormal [Unknown]

NARRATIVE: CASE EVENT DATE: 201706
